FAERS Safety Report 19473273 (Version 2)
Quarter: 2021Q3

REPORT INFORMATION
  Report Type: Report from Study
  Country: US (occurrence: US)
  Receive Date: 20210629
  Receipt Date: 20210701
  Transmission Date: 20211014
  Serious: Yes (Other)
  Sender: FDA-Public Use
  Company Number: US-JAZZ-2021-US-011539

PATIENT
  Sex: Female

DRUGS (3)
  1. XYREM [Suspect]
     Active Substance: SODIUM OXYBATE
     Indication: NARCOLEPSY
     Dosage: 2.25 GRAM, BID
     Route: 048
     Dates: start: 200805, end: 200806
  2. XYREM [Suspect]
     Active Substance: SODIUM OXYBATE
     Dosage: DOSE ADJUSTMENT
     Route: 048
     Dates: start: 200806, end: 201310
  3. XYREM [Suspect]
     Active Substance: SODIUM OXYBATE
     Dosage: 4 GRAM, BID
     Route: 048
     Dates: start: 201310

REACTIONS (7)
  - Constipation [Unknown]
  - Uterine leiomyoma [Recovering/Resolving]
  - Cervical polyp [Recovering/Resolving]
  - Cervical cyst [Recovering/Resolving]
  - Flatulence [Unknown]
  - Procedural pain [Recovering/Resolving]
  - Headache [Recovering/Resolving]
